FAERS Safety Report 20701782 (Version 1)
Quarter: 2022Q2

REPORT INFORMATION
  Report Type: Spontaneous
  Country: US (occurrence: None)
  Receive Date: 20220412
  Receipt Date: 20220412
  Transmission Date: 20220721
  Serious: Yes (Hospitalization)
  Sender: FDA-Public Use
  Company Number: None

PATIENT
  Sex: Female

DRUGS (1)
  1. ORENCIA [Suspect]
     Active Substance: ABATACEPT
     Indication: Rheumatoid arthritis
     Dosage: INJECT 125 MG (1 ML) UNDER THE SKIN (SUBCUTANEOUS INJECTION) EVERY 7 DAYS?
     Route: 058
     Dates: start: 20220104

REACTIONS (1)
  - Therapy interrupted [None]
